FAERS Safety Report 11799577 (Version 4)
Quarter: 2015Q4

REPORT INFORMATION
  Report Type: Spontaneous
  Country: US (occurrence: US)
  Receive Date: 20151203
  Receipt Date: 20151207
  Transmission Date: 20160305
  Serious: No
  Sender: FDA-Public Use
  Company Number: CHPA2015US014232

PATIENT
  Age: 47 Year
  Sex: Female

DRUGS (3)
  1. VOLTAREN [Suspect]
     Active Substance: DICLOFENAC SODIUM
     Indication: ARTHRITIS
     Dosage: SQUEEZE THE GEL OUT, BID
     Route: 061
     Dates: start: 2015
  2. LIDOCAINE. [Suspect]
     Active Substance: LIDOCAINE
     Indication: INFLAMMATION
     Route: 065
  3. VOLTAREN [Suspect]
     Active Substance: DICLOFENAC SODIUM
     Indication: PLANTAR FASCIITIS

REACTIONS (5)
  - Inappropriate schedule of drug administration [Unknown]
  - Wrong technique in product usage process [Unknown]
  - Drug ineffective for unapproved indication [Unknown]
  - Neuropathy peripheral [Recovering/Resolving]
  - Therapeutic response unexpected [Unknown]

NARRATIVE: CASE EVENT DATE: 2015
